FAERS Safety Report 22868108 (Version 2)
Quarter: 2023Q4

REPORT INFORMATION
  Report Type: Other
  Country: IN (occurrence: None)
  Receive Date: 20230825
  Receipt Date: 20231108
  Transmission Date: 20240110
  Serious: Yes (Other)
  Sender: FDA-Public Use
  Company Number: IN-ROCHE-3061026

PATIENT
  Age: 82 Year
  Sex: Female

DRUGS (3)
  1. TECENTRIQ [Suspect]
     Active Substance: ATEZOLIZUMAB
     Indication: Non-small cell lung cancer
     Route: 041
  2. TECENTRIQ [Suspect]
     Active Substance: ATEZOLIZUMAB
     Indication: Non-small cell lung cancer
  3. OSIMERTINIB [Concomitant]
     Active Substance: OSIMERTINIB

REACTIONS (4)
  - Malaise [Unknown]
  - Pyrexia [Unknown]
  - Off label use [Unknown]
  - Pyrexia [Unknown]
